FAERS Safety Report 7464261-7 (Version None)
Quarter: 2011Q2

REPORT INFORMATION
  Report Type: 
  Country: None (occurrence: None)
  Receive Date: 20110508
  Receipt Date: 20110426
  Transmission Date: 20111010
  Serious: No
  Sender: FDA-Public Use
  Company Number: US-ROXANE LABORATORIES, INC.-2011-RO-00574RO

PATIENT
  Sex: Female

DRUGS (1)
  1. EXEMESTANE [Suspect]

REACTIONS (1)
  - ADVERSE EVENT [None]
